FAERS Safety Report 6103342-7 (Version None)
Quarter: 2009Q1

REPORT INFORMATION
  Report Type: 
  Country: None (occurrence: None)
  Receive Date: 20090305
  Receipt Date: 20090224
  Transmission Date: 20090719
  Serious: Yes (Other)
  Sender: FDA-Public Use
  Company Number: JP-BAYER-200910595BYL

PATIENT
  Age: 82 Year
  Sex: Female

DRUGS (9)
  1. NEXAVAR [Suspect]
     Indication: RENAL CELL CARCINOMA STAGE IV
     Dosage: UNIT DOSE: 200 MG
     Route: 048
     Dates: start: 20080828, end: 20080916
  2. MAGMITT [Concomitant]
     Dosage: TOTAL DAILY DOSE: 990 MG
     Route: 048
     Dates: start: 20080828, end: 20080916
  3. PURSENNID [Concomitant]
     Dosage: TOTAL DAILY DOSE: 24 MG
     Route: 048
     Dates: start: 20080828, end: 20080916
  4. NAIXAN [Concomitant]
     Dosage: TOTAL DAILY DOSE: 300 MG
     Route: 048
     Dates: start: 20080828, end: 20080916
  5. MUCOSTA [Concomitant]
     Dosage: TOTAL DAILY DOSE: 300 MG
     Route: 048
     Dates: start: 20080828, end: 20080916
  6. SELECTOL [Concomitant]
     Dosage: TOTAL DAILY DOSE: 100 MG
     Route: 048
     Dates: start: 20080828, end: 20080916
  7. CELTECT [Concomitant]
     Dosage: TOTAL DAILY DOSE: 60 MG
     Route: 048
     Dates: start: 20080828, end: 20080916
  8. TAKEPRON [Concomitant]
     Dosage: TOTAL DAILY DOSE: 30 MG
     Route: 048
     Dates: start: 20080828, end: 20080916
  9. CALBLOCK [Concomitant]
     Dosage: TOTAL DAILY DOSE: 16 MG
     Route: 048
     Dates: start: 20080828, end: 20080916

REACTIONS (4)
  - DIARRHOEA [None]
  - DYSPNOEA [None]
  - HYPERTENSION [None]
  - PLEURAL EFFUSION [None]
